FAERS Safety Report 9869173 (Version 6)
Quarter: 2014Q2

REPORT INFORMATION
  Report Type: Spontaneous
  Country: JP (occurrence: JP)
  Receive Date: 20140205
  Receipt Date: 20140414
  Transmission Date: 20141212
  Serious: Yes (Hospitalization)
  Sender: FDA-Public Use
  Company Number: JP-BRISTOL-MYERS SQUIBB COMPANY-20134813

PATIENT
  Age: 88 Year
  Sex: Female
  Weight: 40 kg

DRUGS (3)
  1. ELIQUIS [Suspect]
     Dosage: TABS 2.5MG?5 MG.
     Route: 048
     Dates: start: 20131226, end: 20140107
  2. LANSOPRAZOLE [Suspect]
     Indication: PROPHYLAXIS
     Route: 048
     Dates: start: 20131229, end: 20140107
  3. IMIDAFENACIN [Suspect]
     Indication: PROPHYLAXIS
     Route: 048
     Dates: start: 20140103, end: 20140107

REACTIONS (1)
  - Stevens-Johnson syndrome [Recovered/Resolved]
